FAERS Safety Report 25062797 (Version 1)
Quarter: 2025Q1

REPORT INFORMATION
  Report Type: Spontaneous
  Country: US (occurrence: None)
  Receive Date: 20250310
  Receipt Date: 20250310
  Transmission Date: 20250409
  Serious: Yes (Hospitalization)
  Sender: FDA-CTU
  Company Number: None

PATIENT
  Age: 58 Year
  Sex: Female

DRUGS (9)
  1. AMBRISENTAN [Suspect]
     Active Substance: AMBRISENTAN
     Indication: Pulmonary arterial hypertension
     Dosage: FREQUENCY : DAILY; DO NOT CRUSH,CHEW, OR SPLIT?
     Route: 048
     Dates: start: 20241008
  2. ALBUTEROL SULFATE [Concomitant]
     Active Substance: ALBUTEROL SULFATE
  3. FUROSEMIDE [Concomitant]
     Active Substance: FUROSEMIDE
  4. LEVOTHYROXINE [Concomitant]
     Active Substance: LEVOTHYROXINE
  5. ONDANSETRON [Concomitant]
     Active Substance: ONDANSETRON
  6. PANTOPRAZOLE [Concomitant]
     Active Substance: PANTOPRAZOLE
  7. PAROXETINE [Concomitant]
     Active Substance: PAROXETINE
  8. STIOLTO AER [Concomitant]
  9. TADALAFIL [Concomitant]
     Active Substance: TADALAFIL

REACTIONS (2)
  - Hospitalisation [None]
  - Product dose omission issue [None]

NARRATIVE: CASE EVENT DATE: 20250212
